FAERS Safety Report 6550037-1 (Version None)
Quarter: 2010Q1

REPORT INFORMATION
  Report Type: 
  Country: None (occurrence: None)
  Receive Date: 20100125
  Receipt Date: 20100113
  Transmission Date: 20100710
  Serious: No
  Sender: FDA-Public Use
  Company Number: US-JNJFOC-20100105138

PATIENT
  Sex: Female
  Weight: 64.41 kg

DRUGS (2)
  1. SANDOZ FENTANYL TRANSDERMAL SYSTEM [Suspect]
     Indication: SPINAL DISORDER
     Route: 062
  2. VENLAFAXINE HCL [Concomitant]
     Indication: PANIC ATTACK
     Route: 048

REACTIONS (3)
  - APPLICATION SITE DRYNESS [None]
  - APPLICATION SITE ULCER [None]
  - WRONG TECHNIQUE IN DRUG USAGE PROCESS [None]
